FAERS Safety Report 9148010 (Version 1)
Quarter: 2013Q1

REPORT INFORMATION
  Report Type: Spontaneous
  Country: FR (occurrence: FR)
  Receive Date: 20130308
  Receipt Date: 20130308
  Transmission Date: 20140127
  Serious: Yes (Hospitalization)
  Sender: FDA-Public Use
  Company Number: 2013SP002675

PATIENT
  Age: 90 Year
  Sex: Female

DRUGS (20)
  1. VANCOMYCIN [Suspect]
     Indication: PRODUCT USED FOR UNKNOWN INDICATION
     Dates: start: 20130103, end: 20130106
  2. VANCOMYCIN [Suspect]
     Indication: PRODUCT USED FOR UNKNOWN INDICATION
     Dates: start: 20130107, end: 20130107
  3. VANCOMYCIN [Suspect]
     Indication: PRODUCT USED FOR UNKNOWN INDICATION
     Dates: start: 20130108, end: 20130114
  4. PIPERACILLIN/TAZOBACTAM [Suspect]
     Indication: PRODUCT USED FOR UNKNOWN INDICATION
     Dates: start: 20130103, end: 20130114
  5. GLUCOSE [Suspect]
     Indication: PRODUCT USED FOR UNKNOWN INDICATION
     Dates: start: 20130103
  6. POTASSIUM CHLORIDE [Suspect]
     Indication: PRODUCT USED FOR UNKNOWN INDICATION
     Dates: start: 20130103
  7. SODIUM CHLORIDE [Suspect]
     Indication: PRODUCT USED FOR UNKNOWN INDICATION
     Dates: start: 20130103
  8. BISOPROLOL [Concomitant]
  9. KARDEGIC [Concomitant]
  10. CLOPIDOGREL [Concomitant]
  11. MACROGOL 4000 [Concomitant]
  12. MIANSERINE [Concomitant]
  13. LOXEN [Concomitant]
  14. ORNITHINE [Concomitant]
  15. PERINDOPRIL [Concomitant]
  16. COUMADINE [Concomitant]
  17. IMOVANE [Concomitant]
  18. PARACETAMOL [Concomitant]
  19. FRANGULA EXTRACT [Concomitant]
  20. STERCULIA [Concomitant]

REACTIONS (1)
  - Hyponatraemia [Unknown]
